FAERS Safety Report 5403867-3 (Version None)
Quarter: 2007Q3

REPORT INFORMATION
  Report Type: 
  Country: None (occurrence: None)
  Receive Date: 20070731
  Receipt Date: 20070731
  Transmission Date: 20080115
  Serious: Yes (Death)
  Sender: FDA-Public Use
  Company Number: None

PATIENT
  Age: 65 Year
  Sex: Female
  Weight: 86.1834 kg

DRUGS (1)
  1. AVANDIA [Suspect]
     Indication: DIABETES MELLITUS
     Dosage: 4MG DAILY, TWICE PO
     Route: 048
     Dates: start: 20060101, end: 20070505

REACTIONS (5)
  - ANGINA PECTORIS [None]
  - ASTHENIA [None]
  - CARDIAC VALVE DISEASE [None]
  - DYSPNOEA [None]
  - FATIGUE [None]
